FAERS Safety Report 4732504-6 (Version None)
Quarter: 2005Q3

REPORT INFORMATION
  Report Type: 
  Country: None (occurrence: None)
  Receive Date: 20050803
  Receipt Date: 20050728
  Transmission Date: 20060218
  Serious: Yes (Life-Threatening)
  Sender: FDA-Public Use
  Company Number: BR-GLAXOSMITHKLINE-A0568311A

PATIENT
  Age: 18 Year
  Sex: Female
  Weight: 53 kg

DRUGS (2)
  1. AMOXIL [Suspect]
     Indication: TONSILLITIS
     Dosage: 5ML THREE TIMES PER DAY
     Route: 048
     Dates: start: 20050715, end: 20050721
  2. ASPIRIN [Concomitant]

REACTIONS (2)
  - ECZEMA [None]
  - PYREXIA [None]
